FAERS Safety Report 22657482 (Version 1)
Quarter: 2023Q2

REPORT INFORMATION
  Report Type: Spontaneous
  Country: US (occurrence: US)
  Receive Date: 20230630
  Receipt Date: 20230630
  Transmission Date: 20230721
  Serious: No
  Sender: FDA-Public Use
  Company Number: US-drreddys-SPO/USA/23/0165108

PATIENT
  Age: 17 Year
  Sex: Female

DRUGS (1)
  1. ZENATANE [Suspect]
     Active Substance: ISOTRETINOIN
     Indication: Product used for unknown indication
     Dosage: RRMA ISSUE DATE: 29-JULY-2019 12:00:00 AM, 29-AUGUST-2019 12:00:00 AM, 02-OCTOBER-2019 12:00:00 AM,

REACTIONS (1)
  - Treatment noncompliance [Unknown]
